FAERS Safety Report 5488260-X (Version None)
Quarter: 2007Q4

REPORT INFORMATION
  Report Type: 
  Country: None (occurrence: None)
  Receive Date: 20071005
  Receipt Date: 20070719
  Transmission Date: 20080405
  Serious: No
  Sender: FDA-Public Use
  Company Number: PHEH2007US10148

PATIENT

DRUGS (1)
  1. TEKTURNA [Suspect]
     Dosage: 150 MG, ORAL
     Route: 048
     Dates: start: 20070712

REACTIONS (2)
  - DIZZINESS [None]
  - URINARY TRACT INFECTION [None]
